FAERS Safety Report 8226250-4 (Version None)
Quarter: 2012Q1

REPORT INFORMATION
  Report Type: 
  Country: None (occurrence: None)
  Receive Date: 20120321
  Receipt Date: 20120316
  Transmission Date: 20120608
  Serious: Yes (Hospitalization, Other)
  Sender: FDA-Public Use
  Company Number: US-ABBOTT-12P-163-0906272-00

PATIENT
  Sex: Male

DRUGS (2)
  1. UNKNOWN CROHN'S MEDICATION [Concomitant]
  2. HUMIRA [Suspect]
     Indication: CROHN'S DISEASE
     Route: 058
     Dates: start: 20111201

REACTIONS (3)
  - CHILLS [None]
  - PYREXIA [None]
  - DERMAL CYST [None]
